FAERS Safety Report 22168244 (Version 1)
Quarter: 2023Q2

REPORT INFORMATION
  Report Type: Spontaneous
  Country: US (occurrence: US)
  Receive Date: 20230403
  Receipt Date: 20230403
  Transmission Date: 20230721
  Serious: No
  Sender: FDA-Public Use
  Company Number: US-PFIZER INC-PV202300045754

PATIENT
  Age: 46 Year
  Sex: Female

DRUGS (4)
  1. INLYTA [Suspect]
     Active Substance: AXITINIB
     Dosage: 5 MG, 1X/DAY (FOR 7DAYS)
  2. INLYTA [Suspect]
     Active Substance: AXITINIB
     Dosage: 5 MG, 2X/DAY (FOR 7DAYS)
  3. INLYTA [Suspect]
     Active Substance: AXITINIB
     Dosage: UNK UNK, 2X/DAY ( 5 MG IN THE AM AND 10 MG IN THE PM; FOR 7 DAYS)
  4. INLYTA [Suspect]
     Active Substance: AXITINIB
     Dosage: 10 MG, 2X/DAY

REACTIONS (3)
  - Palate injury [Unknown]
  - Speech disorder [Unknown]
  - Off label use [Unknown]
